FAERS Safety Report 18140174 (Version 1)
Quarter: 2020Q3

REPORT INFORMATION
  Report Type: Spontaneous
  Country: US (occurrence: US)
  Receive Date: 20200812
  Receipt Date: 20200812
  Transmission Date: 20201103
  Serious: Yes (Hospitalization, Disabling, Other)
  Sender: FDA-Public Use
  Company Number: US-TEVA-2020-US-1812699

PATIENT
  Age: 35 Year
  Sex: Male

DRUGS (1)
  1. IBUPROFEN. [Suspect]
     Active Substance: IBUPROFEN
     Indication: BACK PAIN
     Dosage: 2,400 TO 3,200 MG DAILY FOR SEVERAL MONTHS
     Route: 065

REACTIONS (12)
  - Hypokalaemia [Recovered/Resolved]
  - Paralysis [Unknown]
  - Metabolic acidosis [Unknown]
  - Asthenia [Unknown]
  - Nausea [Unknown]
  - Hypophagia [Unknown]
  - Potassium wasting nephropathy [Recovering/Resolving]
  - Vomiting [Unknown]
  - Intentional product misuse [Recovering/Resolving]
  - Renal tubular acidosis [Recovering/Resolving]
  - Abdominal pain [Unknown]
  - Myalgia [Unknown]
